FAERS Safety Report 15057220 (Version 1)
Quarter: 2018Q2

REPORT INFORMATION
  Report Type: Report from Study
  Country: None (occurrence: US)
  Receive Date: 20180624
  Receipt Date: 20180624
  Transmission Date: 20180711
  Serious: Yes (Other)
  Sender: FDA-Public Use
  Company Number: US-ABBVIE-18K-163-2396627-00

PATIENT
  Sex: Female

DRUGS (1)
  1. HUMIRA [Suspect]
     Active Substance: ADALIMUMAB
     Indication: PSORIASIS
     Route: 058

REACTIONS (4)
  - Skeletal injury [Not Recovered/Not Resolved]
  - Skin lesion [Recovering/Resolving]
  - Fractured coccyx [Not Recovered/Not Resolved]
  - Fall [Not Recovered/Not Resolved]
